FAERS Safety Report 17144480 (Version 1)
Quarter: 2019Q4

REPORT INFORMATION
  Report Type: Spontaneous
  Country: US (occurrence: US)
  Receive Date: 20191211
  Receipt Date: 20191211
  Transmission Date: 20200122
  Serious: No
  Sender: FDA-Public Use
  Company Number: None

PATIENT
  Age: 7 Year
  Sex: Male

DRUGS (8)
  1. CREON 12000 UNITS [Concomitant]
  2. ORKAMBI [Suspect]
     Active Substance: IVACAFTOR\LUMACAFTOR
     Indication: CYSTIC FIBROSIS
     Route: 048
  3. PULMOZYME [Concomitant]
     Active Substance: DORNASE ALFA
  4. CYPROHEPTADINE 4MG [Concomitant]
  5. CETIRIZINE 1MG/ML [Concomitant]
  6. URSODIOL 250MG [Concomitant]
  7. ALBUTEROL 0.083% NEB [Concomitant]
  8. PREVACID 15 MG [Concomitant]

REACTIONS (1)
  - Bacterial infection [None]

NARRATIVE: CASE EVENT DATE: 20191125
